FAERS Safety Report 10362494 (Version 1)
Quarter: 2014Q3

REPORT INFORMATION
  Report Type: Spontaneous
  Country: US (occurrence: None)
  Receive Date: 20140728
  Receipt Date: 20140728
  Transmission Date: 20150326
  Serious: Yes (Other)
  Sender: FDA-Public Use
  Company Number: ADR02014-01026

PATIENT
  Age: 48 Year
  Sex: Male

DRUGS (2)
  1. FENTANYL INTRATHECAL [Suspect]
     Active Substance: FENTANYL
     Indication: MUSCLE SPASTICITY
     Dosage: 40MCG/DAY
  2. BACLOFEN INTRATHECAL [Suspect]
     Active Substance: BACLOFEN
     Indication: MUSCLE SPASTICITY

REACTIONS (8)
  - Muscle twitching [None]
  - Nausea [None]
  - Device failure [None]
  - Hallucination [None]
  - Pain [None]
  - Muscle spasms [None]
  - Mental status changes [None]
  - Hypoaesthesia [None]

NARRATIVE: CASE EVENT DATE: 20140607
